FAERS Safety Report 11822347 (Version 3)
Quarter: 2016Q2

REPORT INFORMATION
  Report Type: Spontaneous
  Country: US (occurrence: US)
  Receive Date: 20151210
  Receipt Date: 20160413
  Transmission Date: 20160815
  Serious: No
  Sender: FDA-Public Use
  Company Number: US-JNJFOC-20150102262

PATIENT
  Age: 82 Year
  Sex: Male

DRUGS (12)
  1. IMBRUVICA [Suspect]
     Active Substance: IBRUTINIB
     Indication: MANTLE CELL LYMPHOMA
     Route: 048
     Dates: end: 2016
  2. ASPIRIN. [Concomitant]
     Active Substance: ASPIRIN
  3. ATORVASTATIN [Concomitant]
     Active Substance: ATORVASTATIN
  4. HCTZ [Concomitant]
     Active Substance: HYDROCHLOROTHIAZIDE
  5. XARELTO [Concomitant]
     Active Substance: RIVAROXABAN
     Indication: MYOCARDIAL INFARCTION
  6. IMBRUVICA [Suspect]
     Active Substance: IBRUTINIB
     Indication: MANTLE CELL LYMPHOMA
     Route: 048
     Dates: start: 2016
  7. RAMIPRIL. [Concomitant]
     Active Substance: RAMIPRIL
  8. XARELTO [Concomitant]
     Active Substance: RIVAROXABAN
     Indication: STENT PLACEMENT
  9. METOPROLOL. [Concomitant]
     Active Substance: METOPROLOL
  10. XARELTO [Concomitant]
     Active Substance: RIVAROXABAN
     Indication: STENT PLACEMENT
  11. IMBRUVICA [Suspect]
     Active Substance: IBRUTINIB
     Indication: MANTLE CELL LYMPHOMA
     Route: 048
     Dates: start: 20141007
  12. XARELTO [Concomitant]
     Active Substance: RIVAROXABAN
     Indication: MYOCARDIAL INFARCTION

REACTIONS (24)
  - Atrial fibrillation [Not Recovered/Not Resolved]
  - Haemorrhage [Not Recovered/Not Resolved]
  - Haematuria [Recovered/Resolved]
  - Oedema peripheral [Not Recovered/Not Resolved]
  - Weight increased [Not Recovered/Not Resolved]
  - Platelet count decreased [Not Recovered/Not Resolved]
  - Muscle spasms [Not Recovered/Not Resolved]
  - Dyspnoea [Not Recovered/Not Resolved]
  - Flatulence [Recovered/Resolved]
  - Haematochezia [Recovered/Resolved]
  - Stomatitis [Not Recovered/Not Resolved]
  - Lung infection [Not Recovered/Not Resolved]
  - Epistaxis [Not Recovered/Not Resolved]
  - Rash [Recovering/Resolving]
  - Hypoaesthesia oral [Not Recovered/Not Resolved]
  - Dysgeusia [Not Recovered/Not Resolved]
  - Arthralgia [Not Recovered/Not Resolved]
  - Impaired healing [Not Recovered/Not Resolved]
  - Anal haemorrhage [Not Recovered/Not Resolved]
  - Gait disturbance [Not Recovered/Not Resolved]
  - Fatigue [Not Recovered/Not Resolved]
  - Skin fissures [Not Recovered/Not Resolved]
  - Onychoclasis [Not Recovered/Not Resolved]
  - Pain in extremity [Not Recovered/Not Resolved]

NARRATIVE: CASE EVENT DATE: 2014
